FAERS Safety Report 25461840 (Version 3)
Quarter: 2025Q3

REPORT INFORMATION
  Report Type: Spontaneous
  Country: AU (occurrence: AU)
  Receive Date: 20250620
  Receipt Date: 20250716
  Transmission Date: 20251021
  Serious: Yes (Other)
  Sender: SANOFI AVENTIS
  Company Number: AU-SA-2025SA174792

PATIENT
  Age: 13 Year

DRUGS (7)
  1. ALEMTUZUMAB [Suspect]
     Active Substance: ALEMTUZUMAB
     Indication: Immunomodulatory therapy
  2. FLUDARABINE PHOSPHATE [Suspect]
     Active Substance: FLUDARABINE PHOSPHATE
     Indication: Osteopetrosis
  3. FLUDARABINE PHOSPHATE [Suspect]
     Active Substance: FLUDARABINE PHOSPHATE
     Indication: Bone marrow conditioning regimen
  4. THIOTEPA [Suspect]
     Active Substance: THIOTEPA
     Indication: Osteopetrosis
  5. THIOTEPA [Suspect]
     Active Substance: THIOTEPA
     Indication: Bone marrow conditioning regimen
  6. TREOSULFAN [Suspect]
     Active Substance: TREOSULFAN
     Indication: Osteopetrosis
  7. TREOSULFAN [Suspect]
     Active Substance: TREOSULFAN
     Indication: Bone marrow conditioning regimen

REACTIONS (2)
  - Graft versus host disease in gastrointestinal tract [Unknown]
  - Off label use [Unknown]
